FAERS Safety Report 4892198-6 (Version None)
Quarter: 2006Q1

REPORT INFORMATION
  Report Type: 
  Country: None (occurrence: None)
  Receive Date: 20060125
  Receipt Date: 20060125
  Transmission Date: 20060701
  Serious: Yes (Life-Threatening)
  Sender: FDA-Public Use
  Company Number: None

PATIENT
  Age: 69 Year
  Sex: Female

DRUGS (1)
  1. FENTANYL [Suspect]
     Indication: SURGERY
     Dosage: 4 ML OVER 155 MINUTES
     Dates: start: 20051107, end: 20051107

REACTIONS (6)
  - BRADYCARDIA [None]
  - CYANOSIS [None]
  - HYPOTENSION [None]
  - POST PROCEDURAL COMPLICATION [None]
  - RESPIRATORY ARREST [None]
  - RESPIRATORY DEPRESSION [None]
